FAERS Safety Report 4997896-1 (Version None)
Quarter: 2006Q2

REPORT INFORMATION
  Report Type: 
  Country: None (occurrence: None)
  Receive Date: 20060508
  Receipt Date: 20060427
  Transmission Date: 20061013
  Serious: Yes (Hospitalization, Other)
  Sender: FDA-Public Use
  Company Number: 2006018938

PATIENT
  Sex: Female
  Weight: 76.2043 kg

DRUGS (9)
  1. LIPITOR [Suspect]
     Indication: BLOOD CHOLESTEROL ABNORMAL
     Dosage: 10 MG (10 MG, 1 IN 1 D)
     Dates: start: 20050401
  2. GLIBENCLAMIDE TABLET (GLIBENCLAMIDE) [Suspect]
     Indication: DIABETES MELLITUS
  3. ALLOPURINOL [Concomitant]
  4. INDAPAMIDE [Concomitant]
  5. LISINOPRIL [Concomitant]
  6. ALL OTHER THERAPEUTIC PRODUCTS (ALL OTHER THERAPEUTIC PRODUCTS) [Concomitant]
  7. CHOLESTYRAMINE RESIN (COLESTYRAMINE) [Concomitant]
  8. GLYBURIDE [Concomitant]
  9. ACTOS [Concomitant]

REACTIONS (7)
  - ANTINEUTROPHIL CYTOPLASMIC ANTIBODY POSITIVE [None]
  - GLOMERULONEPHRITIS [None]
  - HAEMATURIA [None]
  - HIP SURGERY [None]
  - IMMUNE SYSTEM DISORDER [None]
  - PROTEINURIA [None]
  - RENAL FAILURE [None]
